FAERS Safety Report 8193397-0 (Version None)
Quarter: 2012Q1

REPORT INFORMATION
  Report Type: 
  Country: None (occurrence: None)
  Receive Date: 20120308
  Receipt Date: 20120227
  Transmission Date: 20120608
  Serious: Yes (Hospitalization, Other)
  Sender: FDA-Public Use
  Company Number: US-ELI_LILLY_AND_COMPANY-US201106008251

PATIENT
  Sex: Female
  Weight: 72 kg

DRUGS (1)
  1. FORTEO [Suspect]
     Indication: OSTEOPOROSIS
     Dosage: 20 UG, QD

REACTIONS (6)
  - FALL [None]
  - CONFUSIONAL STATE [None]
  - LEG AMPUTATION [None]
  - DIALYSIS DEVICE INSERTION [None]
  - DRUG DOSE OMISSION [None]
  - EPILEPSY [None]
